FAERS Safety Report 7773259-0 (Version None)
Quarter: 2011Q3

REPORT INFORMATION
  Report Type: 
  Country: None (occurrence: None)
  Receive Date: 20110922
  Receipt Date: 20110831
  Transmission Date: 20111222
  Serious: Yes (Death, Other)
  Sender: FDA-Public Use
  Company Number: US-BAXTER-2009BH016671

PATIENT
  Age: 46 Year
  Sex: Male

DRUGS (92)
  1. HEPARIN SODIUM INJECTION [Suspect]
     Route: 040
     Dates: start: 20071012, end: 20071012
  2. HEPARIN SODIUM INJECTION [Suspect]
     Route: 065
     Dates: start: 20070901, end: 20070901
  3. HEPARIN SODIUM INJECTION [Suspect]
     Route: 040
     Dates: start: 20071013, end: 20071013
  4. HEPARIN SODIUM INJECTION [Suspect]
     Route: 040
     Dates: start: 20071013, end: 20071013
  5. HEPARIN SODIUM INJECTION [Suspect]
     Route: 040
     Dates: start: 20071013, end: 20071013
  6. HEPARIN SODIUM 5,000 UNITS IN DEXTROSE 5% [Suspect]
     Indication: SPLENIC VEIN THROMBOSIS
     Route: 041
     Dates: start: 20071004, end: 20071005
  7. HEPARIN SODIUM 5,000 UNITS IN DEXTROSE 5% [Suspect]
     Route: 041
     Dates: start: 20071006, end: 20071006
  8. HEPARIN SODIUM 5,000 UNITS IN DEXTROSE 5% [Suspect]
     Route: 041
     Dates: start: 20071007, end: 20071007
  9. HEPARIN SODIUM 5,000 UNITS IN DEXTROSE 5% [Suspect]
     Route: 041
     Dates: start: 20071007, end: 20071007
  10. HEPARIN SODIUM 5,000 UNITS IN DEXTROSE 5% [Suspect]
     Route: 041
     Dates: start: 20071009, end: 20071009
  11. HEPARIN SODIUM 5,000 UNITS IN DEXTROSE 5% [Suspect]
     Route: 041
     Dates: start: 20071009, end: 20071010
  12. HEPARIN SODIUM 5,000 UNITS IN DEXTROSE 5% [Suspect]
     Route: 041
     Dates: start: 20071014, end: 20071014
  13. HEPARIN SODIUM 5,000 UNITS IN DEXTROSE 5% [Suspect]
     Route: 041
     Dates: start: 20071014, end: 20071014
  14. HEPARIN SODIUM 1,000 UNITS AND SODIUM CHLORIDE 0.9% [Suspect]
     Indication: PRODUCT USED FOR UNKNOWN INDICATION
     Route: 065
  15. PANTOPRAZOLE [Concomitant]
     Indication: PRODUCT USED FOR UNKNOWN INDICATION
     Route: 065
  16. LORTAB [Concomitant]
     Indication: PRODUCT USED FOR UNKNOWN INDICATION
     Route: 048
  17. HEPARIN SODIUM INJECTION [Suspect]
     Indication: SPLENIC VEIN THROMBOSIS
     Route: 040
     Dates: start: 20071011, end: 20071011
  18. HEPARIN SODIUM INJECTION [Suspect]
     Route: 042
     Dates: start: 20071011, end: 20071027
  19. HEPARIN SODIUM 5,000 UNITS IN DEXTROSE 5% [Suspect]
     Route: 041
     Dates: start: 20071006, end: 20071007
  20. HEPARIN SODIUM 5,000 UNITS IN DEXTROSE 5% [Suspect]
     Route: 041
     Dates: start: 20071010, end: 20071011
  21. THIAMINE HCL [Concomitant]
     Indication: PRODUCT USED FOR UNKNOWN INDICATION
     Route: 065
  22. TYLENOL-500 [Concomitant]
     Indication: PRODUCT USED FOR UNKNOWN INDICATION
     Route: 065
  23. HEPARIN SODIUM INJECTION [Suspect]
     Route: 065
     Dates: start: 20070901, end: 20070901
  24. HEPARIN SODIUM INJECTION [Suspect]
     Route: 040
     Dates: start: 20071011, end: 20071014
  25. HEPARIN SODIUM INJECTION [Suspect]
     Route: 040
     Dates: start: 20071014, end: 20071014
  26. HEPARIN SODIUM 5,000 UNITS IN DEXTROSE 5% [Suspect]
     Route: 041
     Dates: start: 20071007, end: 20071008
  27. HEPARIN SODIUM 5,000 UNITS IN DEXTROSE 5% [Suspect]
     Route: 041
     Dates: start: 20071008, end: 20071008
  28. HEPARIN SODIUM 5,000 UNITS IN DEXTROSE 5% [Suspect]
     Route: 041
     Dates: start: 20071013, end: 20071013
  29. HEPARIN SODIUM 5,000 UNITS IN DEXTROSE 5% [Suspect]
     Route: 041
     Dates: start: 20071014, end: 20071014
  30. HEPARIN SODIUM INJECTION [Suspect]
     Route: 042
     Dates: start: 20070928, end: 20071026
  31. ALBUMIN (HUMAN) [Concomitant]
     Indication: PRODUCT USED FOR UNKNOWN INDICATION
     Route: 065
  32. NYSTATIN [Concomitant]
     Indication: PRODUCT USED FOR UNKNOWN INDICATION
     Route: 061
  33. FLAGYL [Concomitant]
     Indication: PRODUCT USED FOR UNKNOWN INDICATION
     Route: 065
  34. XANAX [Concomitant]
     Indication: PRODUCT USED FOR UNKNOWN INDICATION
     Route: 065
  35. HEPARIN SODIUM INJECTION [Suspect]
     Indication: MESENTERIC VEIN THROMBOSIS
     Route: 040
     Dates: start: 20071011, end: 20071011
  36. HEPARIN SODIUM 5,000 UNITS IN DEXTROSE 5% [Suspect]
     Indication: MESENTERIC VEIN THROMBOSIS
     Route: 041
     Dates: start: 20071004, end: 20071005
  37. HEPARIN SODIUM 5,000 UNITS IN DEXTROSE 5% [Suspect]
     Route: 041
     Dates: start: 20071006, end: 20071007
  38. HEPARIN SODIUM 5,000 UNITS IN DEXTROSE 5% [Suspect]
     Route: 041
     Dates: start: 20071007, end: 20071008
  39. HEPARIN SODIUM 5,000 UNITS IN DEXTROSE 5% [Suspect]
     Route: 041
     Dates: start: 20071008, end: 20071008
  40. HEPARIN SODIUM 5,000 UNITS IN DEXTROSE 5% [Suspect]
     Route: 041
     Dates: start: 20071008, end: 20071008
  41. HEPARIN SODIUM 5,000 UNITS IN DEXTROSE 5% [Suspect]
     Route: 041
     Dates: start: 20071009, end: 20071010
  42. HEPARIN SODIUM 5,000 UNITS IN DEXTROSE 5% [Suspect]
     Route: 041
     Dates: start: 20071013, end: 20071013
  43. HEPARIN SODIUM 5,000 UNITS IN DEXTROSE 5% [Suspect]
     Route: 041
     Dates: start: 20071013, end: 20071014
  44. HEPARIN SODIUM 5,000 UNITS IN DEXTROSE 5% [Suspect]
     Route: 041
     Dates: start: 20071013, end: 20071014
  45. MEPERIDINE HCL [Concomitant]
     Indication: PRODUCT USED FOR UNKNOWN INDICATION
     Route: 065
  46. OMNICEF [Concomitant]
     Indication: PRODUCT USED FOR UNKNOWN INDICATION
     Route: 065
  47. HEPARIN SODIUM INJECTION [Suspect]
     Route: 040
     Dates: start: 20071012, end: 20071012
  48. HEPARIN SODIUM INJECTION [Suspect]
     Route: 040
     Dates: start: 20071011, end: 20071014
  49. HEPARIN SODIUM INJECTION [Suspect]
     Route: 040
     Dates: start: 20071011, end: 20071014
  50. HEPARIN SODIUM INJECTION [Suspect]
     Route: 042
     Dates: start: 20071011, end: 20071027
  51. HEPARIN SODIUM INJECTION [Suspect]
     Route: 040
     Dates: start: 20071013, end: 20071013
  52. HEPARIN SODIUM INJECTION [Suspect]
     Route: 040
     Dates: start: 20071013, end: 20071013
  53. HEPARIN SODIUM INJECTION [Suspect]
     Route: 040
     Dates: start: 20071014, end: 20071014
  54. HEPARIN SODIUM 5,000 UNITS IN DEXTROSE 5% [Suspect]
     Route: 041
     Dates: start: 20071007, end: 20071007
  55. HEPARIN SODIUM 5,000 UNITS IN DEXTROSE 5% [Suspect]
     Route: 041
     Dates: start: 20071013, end: 20071013
  56. ASCORBIC ACID [Concomitant]
     Indication: PRODUCT USED FOR UNKNOWN INDICATION
     Route: 065
  57. PHENERGAN HCL [Concomitant]
     Indication: PRODUCT USED FOR UNKNOWN INDICATION
     Route: 065
  58. AMBIEN [Concomitant]
     Indication: PRODUCT USED FOR UNKNOWN INDICATION
     Route: 065
  59. HEPARIN SODIUM INJECTION [Suspect]
     Route: 040
     Dates: start: 20071011, end: 20071014
  60. HEPARIN SODIUM INJECTION [Suspect]
     Route: 040
     Dates: start: 20071014, end: 20071014
  61. HEPARIN SODIUM INJECTION [Suspect]
     Route: 040
     Dates: start: 20071014, end: 20071014
  62. HEPARIN SODIUM 5,000 UNITS IN DEXTROSE 5% [Suspect]
     Route: 041
     Dates: start: 20071007, end: 20071007
  63. HEPARIN SODIUM 5,000 UNITS IN DEXTROSE 5% [Suspect]
     Route: 041
     Dates: start: 20071010, end: 20071011
  64. HEPARIN SODIUM 5,000 UNITS IN DEXTROSE 5% [Suspect]
     Route: 041
     Dates: start: 20071012, end: 20071012
  65. HEPARIN SODIUM 10,000 UNITS IN SODIUM CHLORIDE 0.45% [Suspect]
     Indication: PRODUCT USED FOR UNKNOWN INDICATION
     Route: 065
  66. ZANTAC [Concomitant]
     Indication: PRODUCT USED FOR UNKNOWN INDICATION
     Route: 065
  67. HEPARIN SODIUM INJECTION [Suspect]
     Route: 040
     Dates: start: 20071012, end: 20071012
  68. HEPARIN SODIUM INJECTION [Suspect]
     Route: 065
     Dates: start: 20070901, end: 20070901
  69. HEPARIN SODIUM INJECTION [Suspect]
     Route: 042
     Dates: start: 20071011, end: 20071027
  70. HEPARIN SODIUM INJECTION [Suspect]
     Route: 040
     Dates: start: 20071011, end: 20071014
  71. HEPARIN SODIUM INJECTION [Suspect]
     Route: 040
     Dates: start: 20071011, end: 20071014
  72. HEPARIN SODIUM INJECTION [Suspect]
     Route: 040
     Dates: start: 20071013, end: 20071013
  73. HEPARIN SODIUM 5,000 UNITS IN DEXTROSE 5% [Suspect]
     Route: 041
     Dates: start: 20071009, end: 20071009
  74. HEPARIN SODIUM 5,000 UNITS IN DEXTROSE 5% [Suspect]
     Route: 041
     Dates: start: 20071009, end: 20071009
  75. HEPARIN SODIUM 5,000 UNITS IN DEXTROSE 5% [Suspect]
     Route: 041
     Dates: start: 20071011, end: 20071012
  76. HEPARIN SODIUM 5,000 UNITS IN DEXTROSE 5% [Suspect]
     Route: 041
     Dates: start: 20071012, end: 20071012
  77. HEPARIN SODIUM 5,000 UNITS IN DEXTROSE 5% [Suspect]
     Route: 041
     Dates: start: 20071013, end: 20071013
  78. HEPARIN SODIUM 5,000 UNITS IN DEXTROSE 5% [Suspect]
     Route: 041
     Dates: start: 20071014, end: 20071014
  79. HEPARIN SODIUM 5,000 UNITS IN DEXTROSE 5% [Suspect]
     Route: 041
     Dates: start: 20071014, end: 20071014
  80. HEPARIN SODIUM 5,000 UNITS IN DEXTROSE 5% [Suspect]
     Route: 041
     Dates: start: 20071014, end: 20071014
  81. HEPARIN SODIUM 5,000 UNITS IN DEXTROSE 5% [Suspect]
     Route: 041
     Dates: start: 20071014, end: 20071016
  82. HEPARIN SODIUM INJECTION [Suspect]
     Indication: INTRAVENOUS CATHETER MANAGEMENT
     Route: 040
     Dates: start: 20071011, end: 20071011
  83. HEPARIN SODIUM INJECTION [Suspect]
     Route: 040
     Dates: start: 20071014, end: 20071014
  84. HEPARIN SODIUM INJECTION [Suspect]
     Route: 040
     Dates: start: 20071014, end: 20071014
  85. HEPARIN SODIUM 5,000 UNITS IN DEXTROSE 5% [Suspect]
     Route: 041
     Dates: start: 20071006, end: 20071006
  86. HEPARIN SODIUM 5,000 UNITS IN DEXTROSE 5% [Suspect]
     Route: 041
     Dates: start: 20071008, end: 20071008
  87. HEPARIN SODIUM 5,000 UNITS IN DEXTROSE 5% [Suspect]
     Route: 041
     Dates: start: 20071008, end: 20071008
  88. HEPARIN SODIUM 5,000 UNITS IN DEXTROSE 5% [Suspect]
     Route: 041
     Dates: start: 20071008, end: 20071008
  89. HEPARIN SODIUM 5,000 UNITS IN DEXTROSE 5% [Suspect]
     Route: 041
     Dates: start: 20071009, end: 20071009
  90. HEPARIN SODIUM 5,000 UNITS IN DEXTROSE 5% [Suspect]
     Route: 041
     Dates: start: 20071011, end: 20071012
  91. HEPARIN SODIUM 5,000 UNITS IN DEXTROSE 5% [Suspect]
     Route: 041
     Dates: start: 20071014, end: 20071016
  92. HEPARIN SODIUM INJECTION [Suspect]
     Indication: CENTRAL VENOUS CATHETERISATION
     Route: 042
     Dates: start: 20070921

REACTIONS (15)
  - HEPATORENAL SYNDROME [None]
  - HEPATIC FAILURE [None]
  - JAUNDICE [None]
  - ABDOMINAL COMPARTMENT SYNDROME [None]
  - ORGAN FAILURE [None]
  - BLOOD PRESSURE DECREASED [None]
  - ABDOMINAL PAIN [None]
  - FUNCTIONAL GASTROINTESTINAL DISORDER [None]
  - DYSPNOEA [None]
  - SWELLING [None]
  - MULTI-ORGAN FAILURE [None]
  - RESPIRATORY FAILURE [None]
  - HEPATIC CIRRHOSIS [None]
  - ERYTHEMA [None]
  - CARDIAC DISORDER [None]
